FAERS Safety Report 6745096-7 (Version None)
Quarter: 2010Q2

REPORT INFORMATION
  Report Type: 
  Country: None (occurrence: None)
  Receive Date: 20100527
  Receipt Date: 20100520
  Transmission Date: 20101027
  Serious: Yes (Other)
  Sender: FDA-Public Use
  Company Number: US-AMGEN-KDC413515

PATIENT
  Age: 71 Year
  Sex: Male
  Weight: 71.3 kg

DRUGS (3)
  1. PANITUMUMAB [Suspect]
     Indication: PANCREATIC CARCINOMA
     Route: 042
     Dates: start: 20100511
  2. ERLOTINIB HYDROCHLORIDE [Suspect]
     Route: 048
     Dates: start: 20100511
  3. GEMCITABINE HCL [Suspect]
     Route: 042
     Dates: start: 20100511

REACTIONS (1)
  - LOWER GASTROINTESTINAL HAEMORRHAGE [None]
